FAERS Safety Report 5978975-9 (Version None)
Quarter: 2008Q4

REPORT INFORMATION
  Report Type: 
  Country: None (occurrence: None)
  Receive Date: 20081204
  Receipt Date: 20080410
  Transmission Date: 20090506
  Serious: No
  Sender: FDA-Public Use
  Company Number: US-ABBOTT-08P-163-0438755-00

PATIENT
  Sex: Male
  Weight: 81.72 kg

DRUGS (2)
  1. TRICOR [Suspect]
     Indication: BLOOD TRIGLYCERIDES ABNORMAL
     Route: 048
     Dates: start: 20071101, end: 20080211
  2. TRICOR [Suspect]
     Indication: LOW DENSITY LIPOPROTEIN

REACTIONS (5)
  - BLOOD CHOLESTEROL INCREASED [None]
  - BLOOD HOMOCYSTEINE INCREASED [None]
  - BLOOD TRIGLYCERIDES INCREASED [None]
  - LOW DENSITY LIPOPROTEIN INCREASED [None]
  - MYALGIA [None]
